FAERS Safety Report 9384250 (Version 2)
Quarter: 2014Q1

REPORT INFORMATION
  Report Type: Report from Study
  Country: GB (occurrence: GB)
  Receive Date: 20130705
  Receipt Date: 20140203
  Transmission Date: 20141002
  Serious: Yes (Hospitalization)
  Sender: FDA-Public Use
  Company Number: GB-ROCHE-1241221

PATIENT
  Age: 61 Year
  Sex: Male
  Weight: 161 kg

DRUGS (12)
  1. RITUXIMAB [Suspect]
     Indication: NON-HODGKIN^S LYMPHOMA
     Dosage: DATE OF THE LAST DOSE PRIOR TOTHE SAE: 11/JAN/2012
     Route: 042
     Dates: start: 20120111, end: 20120111
  2. INOTUZUMAB OZOGAMICIN [Suspect]
     Indication: NON-HODGKIN^S LYMPHOMA
     Dosage: 12/JAN/2012
     Route: 042
     Dates: start: 20120112, end: 20120112
  3. CYCLOPHOSPHAMIDE [Suspect]
     Indication: NON-HODGKIN^S LYMPHOMA
     Dosage: DATE OF THE LAST DOSE PRIOR TOTHE SAE: 11/JAN/2012
     Route: 042
     Dates: start: 20120111, end: 20120111
  4. VINCRISTINE SULFATE [Suspect]
     Indication: NON-HODGKIN^S LYMPHOMA
     Dosage: DATE OF THE LAST DOSE PRIOR TO THE SAE:11/JAN/2012
     Route: 042
     Dates: start: 20120111, end: 20120111
  5. PREDNISOLONE [Suspect]
     Indication: NON-HODGKIN^S LYMPHOMA
     Dosage: DATE OF THE LAST DOSE PRIOR TOTHE SAE:14/JAN/2012
     Route: 048
     Dates: start: 20120111, end: 20120114
  6. LANSOPRAZOLE [Concomitant]
  7. AMITRIPTYLINE [Concomitant]
  8. ACETYLSALICYLIC ACID [Concomitant]
  9. CLENIL (UNITED KINGDOM) [Concomitant]
  10. DOCUSATE SODIUM [Concomitant]
  11. ATORVASTATIN [Concomitant]
  12. LABETALOL HYDROCHLORIDE [Concomitant]

REACTIONS (2)
  - Renal failure acute [Recovered/Resolved]
  - Urosepsis [Recovered/Resolved]
